FAERS Safety Report 6097778-0 (Version None)
Quarter: 2009Q1

REPORT INFORMATION
  Report Type: 
  Country: None (occurrence: None)
  Receive Date: 20090223
  Receipt Date: 20081028
  Transmission Date: 20090719
  Serious: Yes (Other)
  Sender: FDA-Public Use
  Company Number: WAES 0810USA05063

PATIENT
  Age: 63 Year
  Sex: Female

DRUGS (1)
  1. ZOCOR [Suspect]
     Dosage: PO
     Route: 048
     Dates: start: 20050101, end: 20050101

REACTIONS (2)
  - BREAST CANCER [None]
  - GASTRIC DISORDER [None]
